FAERS Safety Report 12843478 (Version 1)
Quarter: 2016Q4

REPORT INFORMATION
  Report Type: Spontaneous
  Country: US (occurrence: US)
  Receive Date: 20161012
  Receipt Date: 20161012
  Transmission Date: 20170207
  Serious: Yes (Death, Other)
  Sender: FDA-Public Use
  Company Number: None

PATIENT
  Age: 26 Year
  Sex: Female
  Weight: 58.5 kg

DRUGS (2)
  1. RENAL VITE [Concomitant]
  2. PROPOFOL. [Suspect]
     Active Substance: PROPOFOL
     Indication: CARDIOVASCULAR DISORDER
     Route: 042

REACTIONS (1)
  - Brain death [None]

NARRATIVE: CASE EVENT DATE: 20160905
